FAERS Safety Report 9064852 (Version 2)
Quarter: 2013Q1

REPORT INFORMATION
  Report Type: Spontaneous
  Country: ZA (occurrence: ZA)
  Receive Date: 20130213
  Receipt Date: 20130225
  Transmission Date: 20140127
  Serious: Yes (Hospitalization)
  Sender: FDA-Public Use
  Company Number: ZA-ELI_LILLY_AND_COMPANY-ZA201302000895

PATIENT
  Sex: Female

DRUGS (6)
  1. HUMALOG 25% LISPRO, 75% NPL [Suspect]
     Indication: DIABETES MELLITUS
     Dosage: 50 U, BID
     Route: 058
  2. METFORMIN [Concomitant]
     Indication: DIABETES MELLITUS
     Dosage: 500 MG, BID
     Route: 048
  3. ZARTAN [Concomitant]
     Indication: HYPERTENSION
     Dosage: 1 DF, EACH MORNING
     Route: 048
  4. SIMVASTATIN [Concomitant]
     Indication: BLOOD CHOLESTEROL ABNORMAL
     Dosage: 1 DF, EACH EVENING
     Route: 048
  5. ECOTRIN [Concomitant]
     Indication: ANTICOAGULANT THERAPY
     Dosage: 81 MG, EACH MORNING
     Route: 048
  6. ELTROXIN [Concomitant]
     Indication: HYPOTHYROIDISM
     Dosage: 1 MG, EACH MORNING
     Route: 048

REACTIONS (2)
  - Blood glucose increased [Recovering/Resolving]
  - Tuberculosis [Unknown]
